FAERS Safety Report 7064975-7 (Version None)
Quarter: 2010Q4

REPORT INFORMATION
  Report Type: 
  Country: None (occurrence: None)
  Receive Date: 20101022
  Receipt Date: 20101022
  Transmission Date: 20110411
  Serious: Yes (Other)
  Sender: FDA-Public Use
  Company Number: None

PATIENT
  Age: 48 Year
  Sex: Female
  Weight: 68.0396 kg

DRUGS (1)
  1. OXYCONTIN [Suspect]
     Indication: MULTIPLE SCLEROSIS
     Dosage: 10MG BID PO
     Route: 048

REACTIONS (7)
  - BONE PAIN [None]
  - DRUG INEFFECTIVE [None]
  - INSOMNIA [None]
  - NAUSEA [None]
  - PRODUCT QUALITY ISSUE [None]
  - TABLET ISSUE [None]
  - VOMITING [None]
